FAERS Safety Report 10336718 (Version 2)
Quarter: 2014Q3

REPORT INFORMATION
  Report Type: Report from Study
  Country: None (occurrence: US)
  Receive Date: 20140723
  Receipt Date: 20140723
  Transmission Date: 20150326
  Serious: No
  Sender: FDA-Public Use
  Company Number: US-GALDERMA-US13002752

PATIENT
  Sex: Female

DRUGS (4)
  1. PROGESTERONE/ESTROGEN [Concomitant]
  2. VITAMIN D/MULTIVITAMIN [Concomitant]
  3. ORACEA [Suspect]
     Active Substance: DOXYCYCLINE
     Dosage: 40 MG
     Route: 048
     Dates: start: 2012
  4. ORACEA [Suspect]
     Active Substance: DOXYCYCLINE
     Dosage: 40 MG
     Route: 048
     Dates: start: 2011

REACTIONS (2)
  - Nausea [Recovered/Resolved]
  - Hepatic enzyme increased [Recovered/Resolved]

NARRATIVE: CASE EVENT DATE: 2011
